FAERS Safety Report 5712109-0 (Version None)
Quarter: 2008Q2

REPORT INFORMATION
  Report Type: 
  Country: None (occurrence: None)
  Receive Date: 20080417
  Receipt Date: 20080411
  Transmission Date: 20081010
  Serious: Yes (Life-Threatening)
  Sender: FDA-Public Use
  Company Number: 2008-175426-NL

PATIENT
  Age: 41 Year
  Sex: Male

DRUGS (7)
  1. MIRTAZAPINE [Suspect]
     Indication: SCHIZOPHRENIA, DISORGANISED TYPE
     Dosage: 30 MG QD, ORAL
     Route: 048
     Dates: start: 20080225, end: 20080301
  2. AMISULPRIDE [Suspect]
     Indication: SCHIZOPHRENIA, DISORGANISED TYPE
     Dosage: 100 MG, ORAL
     Route: 048
     Dates: start: 20080217, end: 20080301
  3. LEVOMEPROMAZINE MALEATE [Suspect]
     Indication: SCHIZOPHRENIA, DISORGANISED TYPE
     Dosage: 25 MG BID, ORAL
     Route: 048
     Dates: start: 20080225, end: 20080301
  4. CLOZAPINE [Suspect]
     Indication: SCHIZOPHRENIA, DISORGANISED TYPE
     Dosage: 250 MG/DF, ORAL
     Route: 048
     Dates: start: 20010115, end: 20080301
  5. CLOZAPINE [Suspect]
     Indication: SCHIZOPHRENIA, DISORGANISED TYPE
     Dosage: 250 MG/DF, ORAL
     Route: 048
     Dates: start: 20080310
  6. CITALOPRAM HYDROBROMIDE [Concomitant]
  7. CLOTIAPINE [Concomitant]

REACTIONS (6)
  - CONFUSIONAL STATE [None]
  - DRUG INTERACTION [None]
  - HAEMODYNAMIC INSTABILITY [None]
  - HYPERTENSION [None]
  - NEUROLEPTIC MALIGNANT SYNDROME [None]
  - RHABDOMYOLYSIS [None]
